FAERS Safety Report 24186120 (Version 5)
Quarter: 2024Q3

REPORT INFORMATION
  Report Type: Spontaneous
  Country: JP (occurrence: JP)
  Receive Date: 20240808
  Receipt Date: 20240927
  Transmission Date: 20241016
  Serious: Yes (Life-Threatening, Hospitalization, Other)
  Sender: ROCHE
  Company Number: JP-CHUGAI-2024025694

PATIENT
  Age: 75 Year
  Sex: Male
  Weight: 55 kg

DRUGS (1)
  1. ENSPRYNG [Suspect]
     Active Substance: SATRALIZUMAB-MWGE
     Indication: Neuromyelitis optica spectrum disorder
     Dosage: 120 MILLIGRAM, ONCE/MONTH
     Route: 050
     Dates: start: 20220915

REACTIONS (9)
  - Anuria [Recovering/Resolving]
  - Renal impairment [Recovering/Resolving]
  - Haematuria [Not Recovered/Not Resolved]
  - Hydronephrosis [Not Recovered/Not Resolved]
  - Urinary tract infection [Recovered/Resolved]
  - Septic shock [Recovered/Resolved]
  - Sepsis [Recovering/Resolving]
  - Reduced bladder capacity [Unknown]
  - Urinary tract infection [Recovered/Resolved]

NARRATIVE: CASE EVENT DATE: 20240101
